FAERS Safety Report 8357361-0 (Version None)
Quarter: 2012Q2

REPORT INFORMATION
  Report Type: 
  Country: None (occurrence: None)
  Receive Date: 20120514
  Receipt Date: 20120510
  Transmission Date: 20120825
  Serious: Yes (Death)
  Sender: FDA-Public Use
  Company Number: US-ROCHE-1068264

PATIENT
  Age: 60 Year
  Sex: Female

DRUGS (1)
  1. XELODA [Suspect]
     Indication: COLON CANCER
     Dosage: DOSE:UNKNOWN
     Route: 048
     Dates: start: 20120201, end: 20120301

REACTIONS (3)
  - MALAISE [None]
  - POST PROCEDURAL HAEMORRHAGE [None]
  - HAEMORRHAGE [None]
